FAERS Safety Report 9486681 (Version 1)
Quarter: 2013Q3

REPORT INFORMATION
  Report Type: Report from Study
  Country: ES (occurrence: ES)
  Receive Date: 20130829
  Receipt Date: 20130829
  Transmission Date: 20140515
  Serious: Yes (Hospitalization)
  Sender: FDA-Public Use
  Company Number: ES-SANOFI-AVENTIS-2013SA084691

PATIENT
  Age: 78 Year
  Sex: Female

DRUGS (6)
  1. SEGURIL [Suspect]
     Indication: RENAL FAILURE CHRONIC
     Route: 048
  2. MICARDIS [Interacting]
     Indication: HYPERTENSION
     Dosage: STRENGTH 80 MG
     Route: 048
  3. ALDACTONE [Interacting]
     Indication: HYPERTENSION
     Dosage: STRENGTH 25 MG
     Route: 048
     Dates: start: 20130517
  4. XARELTO [Concomitant]
     Indication: ATRIAL FIBRILLATION
     Route: 048
     Dates: start: 20130517
  5. DACORTIN [Concomitant]
     Indication: RENAL FAILURE CHRONIC
     Route: 048
  6. SANDIMMUN NEORAL [Concomitant]
     Indication: RENAL TRANSPLANT
     Route: 048

REACTIONS (4)
  - Atrioventricular block [Recovered/Resolved]
  - Drug interaction [Unknown]
  - Hyperkalaemia [Recovered/Resolved]
  - Renal failure acute [Recovered/Resolved]
